FAERS Safety Report 5719201-5 (Version None)
Quarter: 2008Q2

REPORT INFORMATION
  Report Type: 
  Country: None (occurrence: None)
  Receive Date: 20080428
  Receipt Date: 20080417
  Transmission Date: 20081010
  Serious: Yes (Hospitalization)
  Sender: FDA-Public Use
  Company Number: FR-BAYER-200811153GPV

PATIENT
  Age: 42 Year
  Sex: Male
  Weight: 74 kg

DRUGS (3)
  1. BETAFERON [Suspect]
     Indication: MULTIPLE SCLEROSIS
     Route: 058
     Dates: start: 20020916, end: 20071101
  2. BETAFERON [Suspect]
     Route: 058
     Dates: start: 20071201
  3. CERIS (TROSPIUM CHLORIDE) [Concomitant]
     Indication: URINARY INCONTINENCE
     Route: 048
     Dates: start: 20070901

REACTIONS (2)
  - INJECTION SITE ABSCESS [None]
  - INJECTION SITE NECROSIS [None]
